FAERS Safety Report 23835106 (Version 1)
Quarter: 2024Q2

REPORT INFORMATION
  Report Type: Report from Study
  Country: CA (occurrence: CA)
  Receive Date: 20240509
  Receipt Date: 20240509
  Transmission Date: 20240716
  Serious: Yes (Other)
  Sender: FDA-Public Use
  Company Number: CA-SANDOZ-SDZ2023CA016311

PATIENT
  Sex: Male

DRUGS (2)
  1. HYRIMOZ [Suspect]
     Active Substance: ADALIMUMAB-ADAZ
     Indication: Crohn^s disease
     Dosage: 40 MG
     Route: 058
     Dates: end: 202304
  2. HYRIMOZ [Suspect]
     Active Substance: ADALIMUMAB-ADAZ
     Dosage: 40 UNK, Q2W
     Route: 065
     Dates: start: 20230804

REACTIONS (8)
  - Pyoderma gangrenosum [Unknown]
  - Arthralgia [Unknown]
  - Abdominal mass [Unknown]
  - Diarrhoea [Unknown]
  - General physical health deterioration [Unknown]
  - Ocular hyperaemia [Unknown]
  - Eye haemorrhage [Unknown]
  - Product dose omission issue [Unknown]
